FAERS Safety Report 10084910 (Version 1)
Quarter: 2014Q2

REPORT INFORMATION
  Report Type: Spontaneous
  Country: US (occurrence: None)
  Receive Date: 20140404
  Receipt Date: 20140404
  Transmission Date: 20141212
  Serious: Yes (Hospitalization)
  Sender: FDA-Public Use
  Company Number: 1353707

PATIENT
  Sex: Female

DRUGS (2)
  1. PERJETA [Suspect]
     Indication: BREAST CANCER METASTATIC
  2. HERCEPTIN (TRASTUZUMAB) [Suspect]
     Indication: BREAST CANCER METASTATIC

REACTIONS (1)
  - Cardiac failure congestive [None]
